FAERS Safety Report 6603884-1 (Version None)
Quarter: 2010Q1

REPORT INFORMATION
  Report Type: 
  Country: None (occurrence: None)
  Receive Date: 20100226
  Receipt Date: 20090228
  Transmission Date: 20100710
  Serious: No
  Sender: FDA-Public Use
  Company Number: A0771833A

PATIENT
  Age: 34 Year
  Sex: Female

DRUGS (3)
  1. LAMICTAL CD [Suspect]
     Indication: DRUG USE FOR UNKNOWN INDICATION
     Dosage: 600MG SINGLE DOSE
     Route: 065
     Dates: start: 20090227
  2. WELLBUTRIN [Concomitant]
  3. PROZAC [Concomitant]

REACTIONS (4)
  - ACCIDENTAL OVERDOSE [None]
  - ATAXIA [None]
  - BALANCE DISORDER [None]
  - DYSARTHRIA [None]
